FAERS Safety Report 7015010-8 (Version None)
Quarter: 2010Q3

REPORT INFORMATION
  Report Type: 
  Country: None (occurrence: None)
  Receive Date: 20100927
  Receipt Date: 20100615
  Transmission Date: 20110219
  Serious: No
  Sender: FDA-Public Use
  Company Number: US-ASTRAZENECA-2010SE19471

PATIENT
  Age: 70 Year
  Sex: Female
  Weight: 51.7 kg

DRUGS (4)
  1. ARIMIDEX [Suspect]
     Route: 048
     Dates: start: 20091201
  2. CRESTOR [Suspect]
     Indication: BLOOD CHOLESTEROL
     Route: 048
     Dates: start: 20091001
  3. BP MEDICATION [Concomitant]
     Indication: HYPERTENSION
  4. FOSAMAX [Concomitant]
     Indication: OSTEOPOROSIS

REACTIONS (2)
  - EXOSTOSIS [None]
  - PAIN IN EXTREMITY [None]
